FAERS Safety Report 9529205 (Version 1)
Quarter: 2013Q1

REPORT INFORMATION
  Report Type: Spontaneous
  Country: US (occurrence: None)
  Receive Date: 20130329
  Receipt Date: 20130329
  Transmission Date: 20140127
  Serious: No
  Sender: FDA-Public Use
  Company Number: 1000042397

PATIENT
  Age: 83 Year
  Sex: Female

DRUGS (7)
  1. LINZESS [Suspect]
     Route: 048
     Dates: start: 20130131, end: 20130201
  2. AMITIZA (LUBIPROSTONE)(LUBIPROSTONE) [Concomitant]
  3. OMEPRAZOLE (OMEPRAZOLE) (OMEPRAZOLE) [Concomitant]
  4. MIRTAZAPINE (MIRTAZAPINE) (MIRTAZAPINE) [Concomitant]
  5. PHENOBARBITAL (PHENOBARBITAL)(PHENOBARBITAL) [Concomitant]
  6. DIOVAN (VALSARTAN) (VALSARTAN) [Concomitant]
  7. ATENOL (ATENOL) (ATENOL) [Concomitant]

REACTIONS (1)
  - Diarrhoea [None]
